FAERS Safety Report 6422508-X (Version None)
Quarter: 2009Q4

REPORT INFORMATION
  Report Type: 
  Country: None (occurrence: None)
  Receive Date: 20091102
  Receipt Date: 20091026
  Transmission Date: 20100525
  Serious: Yes (Hospitalization)
  Sender: FDA-Public Use
  Company Number: US-ASTRAZENECA-2007UW13913

PATIENT
  Age: 20384 Day
  Sex: Male
  Weight: 116.3 kg

DRUGS (19)
  1. SEROQUEL [Suspect]
     Indication: SLEEP DISORDER
     Dosage: 25-50 MG
     Route: 048
     Dates: start: 20001120
  2. SEROQUEL [Suspect]
     Indication: POST-TRAUMATIC STRESS DISORDER
     Dosage: 25-50 MG
     Route: 048
     Dates: start: 20001120
  3. SEROQUEL [Suspect]
     Route: 048
     Dates: start: 20010101
  4. SEROQUEL [Suspect]
     Route: 048
     Dates: start: 20010101
  5. SEROQUEL [Suspect]
     Dosage: 25-50 MG
     Route: 048
     Dates: start: 20090526
  6. SEROQUEL [Suspect]
     Dosage: 25-50 MG
     Route: 048
     Dates: start: 20090526
  7. GEMFIBROZIL [Concomitant]
     Dates: start: 20001120
  8. NEFAZODONE HCL [Concomitant]
     Dates: start: 20001120
  9. ASPIRIN [Concomitant]
     Dosage: 325-800 MG
     Route: 048
     Dates: start: 20030523
  10. PLAVIX [Concomitant]
     Dates: start: 20060718
  11. ZOCOR [Concomitant]
     Dates: start: 20030523
  12. TRAZODONE [Concomitant]
     Dates: start: 20030523
  13. METOPROLOL [Concomitant]
     Dates: start: 20030523
  14. GABAPENTIN [Concomitant]
     Dosage: 1200-2400 MG
     Dates: start: 20090526
  15. GLIPIZIDE [Concomitant]
     Dosage: 10-20 MG
     Dates: start: 20090526
  16. LOSARTAN [Concomitant]
     Dates: start: 20090526
  17. METFORMIN [Concomitant]
     Dates: start: 20090526
  18. NIACIN [Concomitant]
     Dosage: 750 MG, 1500 MG QHS
     Route: 048
     Dates: start: 20090526
  19. OMEPRAZOLE [Concomitant]
     Route: 048
     Dates: start: 20090526

REACTIONS (4)
  - BLOOD CHOLESTEROL INCREASED [None]
  - BLOOD TRIGLYCERIDES INCREASED [None]
  - STENT PLACEMENT [None]
  - TYPE 2 DIABETES MELLITUS [None]
